FAERS Safety Report 7209284-8 (Version None)
Quarter: 2011Q1

REPORT INFORMATION
  Report Type: 
  Country: None (occurrence: None)
  Receive Date: 20110104
  Receipt Date: 20101228
  Transmission Date: 20110831
  Serious: Yes (Disabling)
  Sender: FDA-Public Use
  Company Number: B0691144A

PATIENT
  Sex: Male

DRUGS (3)
  1. BECONASE [Suspect]
     Indication: RHINITIS
     Dosage: 50MCG FOUR TIMES PER DAY
     Route: 045
     Dates: start: 20101108, end: 20101122
  2. GERIMAX [Suspect]
     Indication: RHINITIS
     Route: 048
     Dates: start: 20101108, end: 20101201
  3. PHYTOTHERAPY [Suspect]
     Indication: RHINITIS
     Dosage: 1TAB PER DAY
     Route: 048
     Dates: start: 20101108, end: 20101201

REACTIONS (4)
  - VISUAL ACUITY REDUCED [None]
  - RETINAL DETACHMENT [None]
  - CHROMATOPSIA [None]
  - CHORIORETINOPATHY [None]
